FAERS Safety Report 12555500 (Version 1)
Quarter: 2016Q3

REPORT INFORMATION
  Report Type: Spontaneous
  Country: FR (occurrence: FR)
  Receive Date: 20160714
  Receipt Date: 20160714
  Transmission Date: 20161109
  Serious: Yes (Hospitalization)
  Sender: FDA-Public Use
  Company Number: FR-AMGEN-FRASP2016089749

PATIENT
  Age: 57 Year
  Sex: Female

DRUGS (8)
  1. SOLUPRED [Concomitant]
     Active Substance: PREDNISOLONE
     Dosage: UNK
     Route: 065
     Dates: start: 20160429
  2. EPIRUBICINE [Concomitant]
     Active Substance: EPIRUBICIN
     Dosage: 1 DF, 1 CYCLE
     Route: 042
     Dates: start: 20160301, end: 20160405
  3. AMOXICILLINE [Concomitant]
     Active Substance: AMOXICILLIN
     Dosage: UNK
     Route: 065
     Dates: start: 20160429
  4. PACLITAXEL. [Concomitant]
     Active Substance: PACLITAXEL
     Dosage: UNK UNK, QWK (WEEKLY)
     Route: 065
     Dates: start: 20160509
  5. NEULASTA [Suspect]
     Active Substance: PEGFILGRASTIM
     Indication: INVASIVE DUCTAL BREAST CARCINOMA
     Dosage: 1 DF, 1 CYCLE
     Route: 058
     Dates: start: 20160303, end: 20160511
  6. CYCLOPHOSPHAMIDE. [Concomitant]
     Active Substance: CYCLOPHOSPHAMIDE
     Dosage: 1 DF, 1 CYCLE
     Route: 042
     Dates: start: 20160301, end: 20160405
  7. FLUOROURACILE [Concomitant]
     Active Substance: FLUOROURACIL
     Dosage: 1 DF, 1 CYCLE
     Route: 042
     Dates: start: 20160301, end: 20160405
  8. CIPLOX [Concomitant]
     Active Substance: CIPROFLOXACIN HYDROCHLORIDE
     Dosage: UNK
     Dates: start: 20160429

REACTIONS (3)
  - Respiratory failure [Unknown]
  - Dyspnoea [Unknown]
  - Tachycardia [Unknown]

NARRATIVE: CASE EVENT DATE: 20160405
